FAERS Safety Report 6728495-9 (Version None)
Quarter: 2010Q2

REPORT INFORMATION
  Report Type: 
  Country: None (occurrence: None)
  Receive Date: 20100517
  Receipt Date: 20100510
  Transmission Date: 20101027
  Serious: Yes (Hospitalization, Other)
  Sender: FDA-Public Use
  Company Number: US-PFIZER INC-2010039329

PATIENT
  Sex: Male
  Weight: 97.506 kg

DRUGS (4)
  1. CHANTIX [Suspect]
     Indication: SMOKING CESSATION THERAPY
     Dosage: UNK
  2. CHANTIX [Suspect]
     Dosage: 1 MG, UNK
     Route: 048
     Dates: start: 20100301, end: 20100301
  3. CHANTIX [Suspect]
     Dosage: UNK
     Dates: start: 20100401, end: 20100401
  4. PROLIXIN [Concomitant]
     Indication: SCHIZOPHRENIA
     Dosage: 37.5 MG, UNK, 2X/MONTH

REACTIONS (11)
  - AGGRESSION [None]
  - AGITATION [None]
  - BRONCHITIS [None]
  - DEPRESSION [None]
  - DYSPNOEA [None]
  - FEELING ABNORMAL [None]
  - HOSTILITY [None]
  - LETHARGY [None]
  - PSYCHOTIC DISORDER [None]
  - SUICIDAL IDEATION [None]
  - WHITE BLOOD CELL COUNT INCREASED [None]
